FAERS Safety Report 7581504-X (Version None)
Quarter: 2011Q2

REPORT INFORMATION
  Report Type: 
  Country: None (occurrence: None)
  Receive Date: 20110629
  Receipt Date: 20110623
  Transmission Date: 20111010
  Serious: Yes (Death, Other)
  Sender: FDA-Public Use
  Company Number: IL-ROXANE LABORATORIES, INC.-2011-RO-00885RO

PATIENT
  Age: 54 Year
  Sex: Male

DRUGS (13)
  1. SIMVASTATIN [Concomitant]
  2. SULFAMETHOXAZOLE AND TRIMETHOPRIM [Concomitant]
  3. MESNA [Suspect]
     Indication: DIFFUSE LARGE B-CELL LYMPHOMA
  4. FOLIC ACID [Concomitant]
  5. CYCLOPHOSPHAMIDE [Suspect]
     Indication: DIFFUSE LARGE B-CELL LYMPHOMA
  6. DOXORUBICIN HCL [Suspect]
     Indication: DIFFUSE LARGE B-CELL LYMPHOMA
  7. CYTARABINE [Suspect]
     Indication: DIFFUSE LARGE B-CELL LYMPHOMA
     Route: 037
  8. TAMSULOSIN HCL [Concomitant]
  9. RITUXIMAB [Suspect]
     Indication: DIFFUSE LARGE B-CELL LYMPHOMA
  10. ASPIRIN [Concomitant]
  11. LACTULOSE [Concomitant]
  12. LEUCOVORIN CALCIUM [Concomitant]
  13. METHENAMINE TAB [Concomitant]

REACTIONS (4)
  - DECUBITUS ULCER [None]
  - TOOTHACHE [None]
  - TOXICITY TO VARIOUS AGENTS [None]
  - SEPSIS [None]
